FAERS Safety Report 12902291 (Version 2)
Quarter: 2017Q1

REPORT INFORMATION
  Report Type: Spontaneous
  Country: US (occurrence: US)
  Receive Date: 20161102
  Receipt Date: 20170313
  Transmission Date: 20170428
  Serious: Yes (Life-Threatening, Hospitalization, Other)
  Sender: FDA-Public Use
  Company Number: US-BAUSCH-BL-2016-026777

PATIENT
  Age: 73 Year
  Sex: Male
  Weight: 61.7 kg

DRUGS (2)
  1. FLUOROURACIL. [Suspect]
     Active Substance: FLUOROURACIL
     Indication: ANAL CANCER STAGE I
     Dosage: 6720 MG
     Route: 041
  2. MITOMYCIN. [Concomitant]
     Active Substance: MITOMYCIN
     Indication: ANAL CANCER STAGE I
     Dosage: ON DAY 1

REACTIONS (14)
  - Conduction disorder [Recovered/Resolved]
  - Mucosal inflammation [Recovered/Resolved]
  - Platelet count decreased [Recovered/Resolved]
  - Toxicity to various agents [Recovered/Resolved]
  - Syncope [Recovered/Resolved]
  - White blood cell count decreased [Recovered/Resolved]
  - Pyrexia [Recovered/Resolved]
  - Nausea [Recovered/Resolved]
  - Hiccups [Recovered/Resolved]
  - Cyanosis [Recovered/Resolved]
  - Dyspnoea [Recovered/Resolved]
  - Neutropenia [Recovered/Resolved]
  - Fatigue [Recovered/Resolved]
  - Diarrhoea [Recovered/Resolved]
